FAERS Safety Report 11415210 (Version 2)
Quarter: 2015Q3

REPORT INFORMATION
  Report Type: Spontaneous
  Country: US (occurrence: US)
  Receive Date: 20150825
  Receipt Date: 20150923
  Transmission Date: 20151125
  Serious: No
  Sender: FDA-Public Use
  Company Number: US-ASTRAZENECA-2015SE78977

PATIENT
  Sex: Female

DRUGS (1)
  1. PULMICORT FLEXHALER [Suspect]
     Active Substance: BUDESONIDE
     Dosage: 180 MG TWO PUFFS TWICE A DAY
     Route: 055
     Dates: start: 20150810

REACTIONS (3)
  - Nervousness [Unknown]
  - Device defective [Unknown]
  - Circumstance or information capable of leading to medication error [Unknown]
